FAERS Safety Report 8466490-2 (Version None)
Quarter: 2012Q2

REPORT INFORMATION
  Report Type: 
  Country: None (occurrence: None)
  Receive Date: 20120620
  Receipt Date: 20120620
  Transmission Date: 20120825
  Serious: Yes (Hospitalization)
  Sender: FDA-Public Use
  Company Number: None

PATIENT
  Age: 63 Year
  Sex: Female
  Weight: 65.7716 kg

DRUGS (2)
  1. CYMBALTA [Suspect]
     Indication: NERVOUS SYSTEM DISORDER
     Dosage: 1 CAPSULE NIGHTLY PO
     Route: 048
     Dates: start: 20110901, end: 20111128
  2. CYMBALTA [Suspect]
     Indication: NERVOUS SYSTEM DISORDER
     Dosage: 1 CAPSULE NIGHTLY PO
     Route: 048
     Dates: start: 20111129, end: 20120207

REACTIONS (14)
  - OBSESSIVE THOUGHTS [None]
  - LETHARGY [None]
  - NIGHTMARE [None]
  - PARANOIA [None]
  - CONFUSIONAL STATE [None]
  - PSYCHOTIC DISORDER [None]
  - QUALITY OF LIFE DECREASED [None]
  - ANGER [None]
  - HOSTILITY [None]
  - SEROTONIN SYNDROME [None]
  - BRONCHITIS [None]
  - REFUSAL OF TREATMENT BY PATIENT [None]
  - MEMORY IMPAIRMENT [None]
  - NIGHT SWEATS [None]
